FAERS Safety Report 11364694 (Version 1)
Quarter: 2015Q3

REPORT INFORMATION
  Report Type: Spontaneous
  Country: US (occurrence: None)
  Receive Date: 20150810
  Receipt Date: 20150810
  Transmission Date: 20151125
  Serious: Yes (Other)
  Sender: FDA-Public Use
  Company Number: None

PATIENT
  Age: 43 Year
  Sex: Male
  Weight: 76.2 kg

DRUGS (7)
  1. BACTRIM (SULFAMETH/TRIMETHOPRIM) [Concomitant]
  2. SINGULAR (MONTELUKAST) [Concomitant]
  3. FLUTICASONE NASAL SPRAY [Concomitant]
     Active Substance: FLUTICASONE\FLUTICASONE PROPIONATE
  4. VITAMIN D [Concomitant]
     Active Substance: CHOLECALCIFEROL
  5. LEVOCETIRIZINE [Concomitant]
     Active Substance: LEVOCETIRIZINE
  6. LEVOFLOXACIN 750 MG ZYDUS [Suspect]
     Active Substance: LEVOFLOXACIN
     Indication: PNEUMONIA
     Dosage: 1 PILL ONCE DAILY
     Route: 048
     Dates: start: 20150804, end: 20150808
  7. AZELASTINE HCL [Concomitant]
     Active Substance: AZELASTINE HYDROCHLORIDE

REACTIONS (3)
  - Anxiety [None]
  - Abnormal dreams [None]
  - Pain in extremity [None]

NARRATIVE: CASE EVENT DATE: 20150808
